FAERS Safety Report 5472025-9 (Version None)
Quarter: 2007Q3

REPORT INFORMATION
  Report Type: 
  Country: None (occurrence: None)
  Receive Date: 20070928
  Receipt Date: 20070918
  Transmission Date: 20080115
  Serious: Yes (Life-Threatening, Hospitalization, Other)
  Sender: FDA-Public Use
  Company Number: DE-PFIZER INC-2007078294

PATIENT
  Sex: Male
  Weight: 83 kg

DRUGS (7)
  1. SU-011,248 [Suspect]
     Indication: METASTATIC RENAL CELL CARCINOMA
     Route: 048
     Dates: start: 20060116, end: 20060211
  2. SU-011,248 [Suspect]
     Route: 048
     Dates: start: 20070811, end: 20070907
  3. NOVONORM [Concomitant]
     Route: 048
  4. DEXAMETHASONE 0.5MG TAB [Concomitant]
     Route: 048
     Dates: start: 20070521
  5. BERLOSIN [Concomitant]
     Route: 048
     Dates: start: 20070713
  6. ALL OTHER THERAPEUTIC PRODUCTS [Concomitant]
     Route: 048
     Dates: start: 20070713
  7. LANTUS [Concomitant]
     Route: 058
     Dates: start: 20070701

REACTIONS (2)
  - ARRHYTHMIA [None]
  - CONGESTIVE CARDIOMYOPATHY [None]
